FAERS Safety Report 7878582-7 (Version None)
Quarter: 2011Q4

REPORT INFORMATION
  Report Type: 
  Country: None (occurrence: None)
  Receive Date: 20111101
  Receipt Date: 20111101
  Transmission Date: 20120403
  Serious: Yes (Other)
  Sender: FDA-Public Use
  Company Number: None

PATIENT
  Age: 65 Year
  Sex: Female
  Weight: 68.038 kg

DRUGS (1)
  1. RECLAST [Suspect]
     Indication: OSTEOPENIA
     Dosage: INFUSION
     Route: 051
     Dates: start: 20111010, end: 20111010

REACTIONS (4)
  - EXPOSED BONE IN JAW [None]
  - OESOPHAGEAL DISORDER [None]
  - BONE LOSS [None]
  - PAIN [None]
